FAERS Safety Report 13151234 (Version 1)
Quarter: 2017Q1

REPORT INFORMATION
  Report Type: Spontaneous
  Country: US (occurrence: US)
  Receive Date: 20170125
  Receipt Date: 20170125
  Transmission Date: 20170428
  Serious: Yes (Hospitalization, Disabling, Other)
  Sender: FDA-Public Use
  Company Number: None

PATIENT
  Age: 55 Year
  Sex: Female
  Weight: 76.2 kg

DRUGS (20)
  1. ENBREL [Suspect]
     Active Substance: ETANERCEPT
     Indication: FIBROMYALGIA
     Dosage: QUANITY - INJECT 50 MG SUBCUTANEOUSLY 1X WEEKLY
     Route: 058
     Dates: start: 20160216, end: 20160518
  2. CLONIDINE. [Concomitant]
     Active Substance: CLONIDINE
  3. BENAZEPRIL HCL [Concomitant]
     Active Substance: BENAZEPRIL HYDROCHLORIDE
  4. MULTIVITAMIN-CENTRUM-SILVER [Concomitant]
  5. CYCLOBENZAPRINE HCL (FLEXERIL) [Concomitant]
  6. ASPIRIN. [Concomitant]
     Active Substance: ASPIRIN
  7. ENBREL [Suspect]
     Active Substance: ETANERCEPT
     Indication: OSTEOPOROSIS
     Dosage: QUANITY - INJECT 50 MG SUBCUTANEOUSLY 1X WEEKLY
     Route: 058
     Dates: start: 20160216, end: 20160518
  8. RELAFEN [Concomitant]
     Active Substance: NABUMETONE
  9. NORVASC [Concomitant]
     Active Substance: AMLODIPINE BESYLATE
  10. POTASSIUM CHLORIDE. [Concomitant]
     Active Substance: POTASSIUM CHLORIDE
  11. CLONAZEPAM (KLONOPIN) [Concomitant]
  12. DOCUSATE SODIUM. [Concomitant]
     Active Substance: DOCUSATE SODIUM
  13. BENADRYL [Concomitant]
     Active Substance: DIPHENHYDRAMINE HYDROCHLORIDE
  14. ENBREL [Suspect]
     Active Substance: ETANERCEPT
     Indication: RHEUMATOID ARTHRITIS
     Dosage: QUANITY - INJECT 50 MG SUBCUTANEOUSLY 1X WEEKLY
     Route: 058
     Dates: start: 20160216, end: 20160518
  15. HCTZ [Concomitant]
     Active Substance: HYDROCHLOROTHIAZIDE
  16. METFORMIN [Concomitant]
     Active Substance: METFORMIN HYDROCHLORIDE
  17. ATORVASTATIN CALCIUM (LIPITOR) [Concomitant]
  18. TRAMADOL HCL [Concomitant]
     Active Substance: TRAMADOL HYDROCHLORIDE
  19. VITAMIN D [Concomitant]
     Active Substance: CHOLECALCIFEROL
  20. STOOL SOFTENER (DOCUSATE CALCIUM) [Concomitant]
     Active Substance: DOCUSATE CALCIUM

REACTIONS (2)
  - Breast mass [None]
  - Breast cancer [None]

NARRATIVE: CASE EVENT DATE: 20160220
